FAERS Safety Report 5006736-6 (Version None)
Quarter: 2006Q2

REPORT INFORMATION
  Report Type: 
  Country: None (occurrence: None)
  Receive Date: 20060516
  Receipt Date: 20060504
  Transmission Date: 20061013
  Serious: Yes (Life-Threatening, Hospitalization, Other)
  Sender: FDA-Public Use
  Company Number: DE_050515992

PATIENT
  Age: 72 Year
  Sex: Female
  Weight: 62 kg

DRUGS (8)
  1. GEMZAR [Suspect]
     Indication: BRONCHIAL CARCINOMA
     Dosage: 1660 MG, INTRAVENOUS
     Route: 042
     Dates: start: 20050324, end: 20050101
  2. CISPLATIN [Concomitant]
  3. LORAZEPAM [Concomitant]
  4. T 10 (MORPHINE SULFATE) [Concomitant]
  5. PASPERTIN [Concomitant]
  6. ENOXAPARIN SODIUM [Concomitant]
  7. MCP (METOCLOPRAMIDE HYDROCHLORIDE) [Concomitant]
  8. ASPIRIN [Concomitant]

REACTIONS (4)
  - ANAEMIA [None]
  - ARTERIAL OCCLUSIVE DISEASE [None]
  - DRUG INTOLERANCE [None]
  - PLATELET COUNT DECREASED [None]
